FAERS Safety Report 19676848 (Version 1)
Quarter: 2021Q3

REPORT INFORMATION
  Report Type: Spontaneous
  Country: US (occurrence: US)
  Receive Date: 20210809
  Receipt Date: 20210809
  Transmission Date: 20211014
  Serious: No
  Sender: FDA-Public Use
  Company Number: US-PFIZER INC-2020395635

PATIENT
  Age: 69 Year
  Sex: Female
  Weight: 95.25 kg

DRUGS (3)
  1. DILANTIN [Suspect]
     Active Substance: PHENYTOIN
     Indication: SEIZURE
     Dosage: 100 MG, DAILY
     Dates: start: 2011
  2. DILANTIN [Suspect]
     Active Substance: PHENYTOIN
     Indication: DEPRESSION
  3. DILANTIN [Suspect]
     Active Substance: PHENYTOIN
     Indication: BIPOLAR DISORDER

REACTIONS (1)
  - Therapeutic product effect incomplete [Unknown]
